FAERS Safety Report 6669641-5 (Version None)
Quarter: 2010Q2

REPORT INFORMATION
  Report Type: 
  Country: None (occurrence: None)
  Receive Date: 20100406
  Receipt Date: 20100325
  Transmission Date: 20101027
  Serious: Yes (Hospitalization, Other)
  Sender: FDA-Public Use
  Company Number: US-PFIZER INC-2010029136

PATIENT
  Sex: Female
  Weight: 101 kg

DRUGS (9)
  1. CHANTIX [Suspect]
     Indication: SMOKING CESSATION THERAPY
     Dosage: 0.5 MG, 1X/DAY
     Route: 048
     Dates: start: 20100301, end: 20100301
  2. CHANTIX [Suspect]
     Dosage: 0.5 MG, 2X/DAY
     Dates: start: 20100301
  3. CHANTIX [Suspect]
     Dosage: 1 MG, 2X/DAY
     Dates: start: 20100308, end: 20100323
  4. CYMBALTA [Concomitant]
     Indication: BIPOLAR DISORDER
     Dosage: 60 MG, 1X/DAY
  5. CYMBALTA [Concomitant]
     Indication: FIBROMYALGIA
  6. NORCO [Concomitant]
     Indication: BACK PAIN
     Dosage: 10 MG, UNK
  7. ROBAXIN [Concomitant]
     Indication: BACK PAIN
     Dosage: 1000 MG, 2X/DAY
  8. ZYRTEC [Concomitant]
     Indication: HYPERSENSITIVITY
     Dosage: 10 MG, 1X/DAY
  9. GABAPENTIN [Concomitant]
     Indication: FIBROMYALGIA
     Dosage: 600 MG, 2X/DAY

REACTIONS (7)
  - ANGER [None]
  - GASTROINTESTINAL INFECTION [None]
  - HOSTILITY [None]
  - HYPERSENSITIVITY [None]
  - NEOPLASM [None]
  - OEDEMA PERIPHERAL [None]
  - RASH [None]
